FAERS Safety Report 6197756-7 (Version None)
Quarter: 2009Q2

REPORT INFORMATION
  Report Type: 
  Country: None (occurrence: None)
  Receive Date: 20090521
  Receipt Date: 20090518
  Transmission Date: 20091009
  Serious: Yes (Hospitalization)
  Sender: FDA-Public Use
  Company Number: US-BRISTOL-MYERS SQUIBB COMPANY-14630016

PATIENT
  Age: 81 Year
  Sex: Male
  Weight: 100 kg

DRUGS (4)
  1. CISPLATIN [Suspect]
     Indication: OESOPHAGEAL ADENOCARCINOMA
     Dosage: FIRST DOSE: 24MAR09
     Dates: start: 20090421, end: 20090421
  2. TAXOL [Suspect]
     Indication: OESOPHAGEAL ADENOCARCINOMA
     Dosage: FIRST DOSE: 24MAR09,50 MG/M2
     Dates: start: 20090421, end: 20090421
  3. CETUXIMAB [Suspect]
     Indication: OESOPHAGEAL ADENOCARCINOMA
  4. RADIATION THERAPY [Suspect]
     Indication: OESOPHAGEAL ADENOCARCINOMA
     Dosage: 1 DOSAGE FORM = 180CGY;NO OF FRACTION:28; NO OF ELAPSED DAYS:38; FIRST DOSE: 24MAR09
     Dates: start: 20090501, end: 20090501

REACTIONS (1)
  - ACUTE RESPIRATORY DISTRESS SYNDROME [None]
